FAERS Safety Report 10846896 (Version 1)
Quarter: 2015Q1

REPORT INFORMATION
  Report Type: Spontaneous
  Country: US (occurrence: US)
  Receive Date: 20150220
  Receipt Date: 20150220
  Transmission Date: 20150721
  Serious: No
  Sender: FDA-Public Use
  Company Number: US-009507513-1502USA008154

PATIENT
  Sex: Female

DRUGS (1)
  1. A AND D [Suspect]
     Active Substance: DIMETHICONE\PETROLATUM\ZINC OXIDE
     Indication: PRODUCT USED FOR UNKNOWN INDICATION
     Dosage: UNK, UNKNOWN
     Route: 061

REACTIONS (2)
  - Chemical burn of skin [Unknown]
  - Accidental exposure to product [Unknown]
